FAERS Safety Report 19153362 (Version 3)
Quarter: 2021Q3

REPORT INFORMATION
  Report Type: Spontaneous
  Country: US (occurrence: US)
  Receive Date: 20210419
  Receipt Date: 20210701
  Transmission Date: 20211014
  Serious: Yes (Hospitalization, Other)
  Sender: FDA-Public Use
  Company Number: NVSC2021US087641

PATIENT
  Age: 56 Year
  Sex: Male

DRUGS (1)
  1. LAMISIL [Suspect]
     Active Substance: TERBINAFINE HYDROCHLORIDE
     Indication: ONYCHOMYCOSIS
     Dosage: UNK
     Route: 065
     Dates: start: 20190911, end: 20191203

REACTIONS (19)
  - Injury [Unknown]
  - Emotional distress [Unknown]
  - Anhedonia [Unknown]
  - Tachycardia [Unknown]
  - Lactic acidosis [Unknown]
  - Mitral valve incompetence [Unknown]
  - Hepatic encephalopathy [Recovered/Resolved]
  - Leukocytosis [Not Recovered/Not Resolved]
  - Acute hepatic failure [Recovered/Resolved]
  - Nausea [Unknown]
  - Obesity [Unknown]
  - Grief reaction [Unknown]
  - Gallbladder polyp [Unknown]
  - Hyperammonaemia [Unknown]
  - Drug-induced liver injury [Unknown]
  - Malaise [Unknown]
  - Fatigue [Not Recovered/Not Resolved]
  - Jaundice [Not Recovered/Not Resolved]
  - Coagulopathy [Unknown]

NARRATIVE: CASE EVENT DATE: 20191203
